FAERS Safety Report 16678868 (Version 2)
Quarter: 2019Q4

REPORT INFORMATION
  Report Type: Spontaneous
  Country: US (occurrence: US)
  Receive Date: 20190807
  Receipt Date: 20191001
  Transmission Date: 20200122
  Serious: Yes (Hospitalization, Other)
  Sender: FDA-Public Use
  Company Number: US-ASTRAZENECA-2019SF09714

PATIENT
  Age: 19738 Day
  Sex: Female
  Weight: 64 kg

DRUGS (44)
  1. FLUOXETINE [Concomitant]
     Active Substance: FLUOXETINE HYDROCHLORIDE
  2. VENLAFAXINE [Concomitant]
     Active Substance: VENLAFAXINE HYDROCHLORIDE
  3. ZOLPIDEM [Concomitant]
     Active Substance: ZOLPIDEM TARTRATE
  4. BUPROPION. [Concomitant]
     Active Substance: BUPROPION
  5. SEROQUEL [Concomitant]
     Active Substance: QUETIAPINE FUMARATE
  6. HYDROQUINONE. [Concomitant]
     Active Substance: HYDROQUINONE
  7. PRILOSEC [Suspect]
     Active Substance: OMEPRAZOLE MAGNESIUM
     Indication: GASTROOESOPHAGEAL REFLUX DISEASE
     Dosage: GENERIC
     Route: 065
     Dates: start: 201002, end: 201406
  8. PRILOSEC [Suspect]
     Active Substance: OMEPRAZOLE MAGNESIUM
     Indication: GASTROOESOPHAGEAL REFLUX DISEASE
     Route: 048
     Dates: start: 200807, end: 200810
  9. QUETIAPINE. [Concomitant]
     Active Substance: QUETIAPINE
  10. MELOXICAM. [Concomitant]
     Active Substance: MELOXICAM
  11. DILTIAZEM. [Concomitant]
     Active Substance: DILTIAZEM
  12. CLONAZEPAM. [Concomitant]
     Active Substance: CLONAZEPAM
  13. NIFEDIPINE. [Concomitant]
     Active Substance: NIFEDIPINE
  14. FLUOXETINE [Concomitant]
     Active Substance: FLUOXETINE HYDROCHLORIDE
  15. LITHIUM. [Concomitant]
     Active Substance: LITHIUM
  16. ABILIFY [Concomitant]
     Active Substance: ARIPIPRAZOLE
  17. KLOR-CON [Concomitant]
     Active Substance: POTASSIUM CHLORIDE
  18. PRILOSEC OTC [Suspect]
     Active Substance: OMEPRAZOLE MAGNESIUM
     Indication: GASTROOESOPHAGEAL REFLUX DISEASE
     Route: 048
     Dates: start: 2006, end: 2016
  19. GABAPENTIN. [Concomitant]
     Active Substance: GABAPENTIN
  20. TRIAMTERENE. [Concomitant]
     Active Substance: TRIAMTERENE
  21. FLUTICASONE. [Concomitant]
     Active Substance: FLUTICASONE
  22. SPIRIVA [Concomitant]
     Active Substance: TIOTROPIUM BROMIDE MONOHYDRATE
  23. LISINOPRIL. [Concomitant]
     Active Substance: LISINOPRIL
  24. ERYTHROMYCIN. [Concomitant]
     Active Substance: ERYTHROMYCIN
  25. PRILOSEC [Suspect]
     Active Substance: OMEPRAZOLE MAGNESIUM
     Indication: GASTROOESOPHAGEAL REFLUX DISEASE
     Dosage: GENERIC
     Route: 065
     Dates: start: 20140324
  26. CYMBALTA [Concomitant]
     Active Substance: DULOXETINE HYDROCHLORIDE
  27. LYRICA [Concomitant]
     Active Substance: PREGABALIN
  28. VITAMIN D [Concomitant]
     Active Substance: VITAMIN D NOS
  29. PEPCID [Concomitant]
     Active Substance: FAMOTIDINE
  30. MELOXICAM. [Concomitant]
     Active Substance: MELOXICAM
  31. EFFEXOR [Concomitant]
     Active Substance: VENLAFAXINE HYDROCHLORIDE
  32. HYDROCODONE BITARTRATE AND ACETAMINOPHEN [Concomitant]
     Active Substance: ACETAMINOPHEN\HYDROCODONE BITARTRATE
  33. ZYPREXA [Concomitant]
     Active Substance: OLANZAPINE
  34. LISINOPRIL. [Concomitant]
     Active Substance: LISINOPRIL
  35. PAROXETINE. [Concomitant]
     Active Substance: PAROXETINE
  36. METRONIDAZOLE. [Concomitant]
     Active Substance: METRONIDAZOLE
  37. AZITHROMYCIN ANHYDROUS. [Concomitant]
     Active Substance: AZITHROMYCIN ANHYDROUS
  38. SULFAMETHOXAZOL [Concomitant]
     Active Substance: SULFAMETHOXAZOLE
  39. CLINDAMYCIN. [Concomitant]
     Active Substance: CLINDAMYCIN
  40. PRILOSEC [Suspect]
     Active Substance: OMEPRAZOLE MAGNESIUM
     Indication: GASTROOESOPHAGEAL REFLUX DISEASE
     Route: 048
     Dates: start: 2006, end: 2016
  41. LUNESTA [Concomitant]
     Active Substance: ESZOPICLONE
  42. ZANTAC [Concomitant]
     Active Substance: RANITIDINE HYDROCHLORIDE
  43. LITHIUM. [Concomitant]
     Active Substance: LITHIUM
  44. PREDNISONE. [Concomitant]
     Active Substance: PREDNISONE

REACTIONS (3)
  - Acute kidney injury [Not Recovered/Not Resolved]
  - Renal failure [Unknown]
  - Chronic kidney disease [Not Recovered/Not Resolved]

NARRATIVE: CASE EVENT DATE: 20160825
